FAERS Safety Report 26173095 (Version 1)
Quarter: 2025Q4

REPORT INFORMATION
  Report Type: Spontaneous
  Country: US (occurrence: US)
  Receive Date: 20251218
  Receipt Date: 20251218
  Transmission Date: 20260118
  Serious: Yes (Other)
  Sender: JUBILANT
  Company Number: None

PATIENT
  Age: 77 Year
  Sex: Male

DRUGS (1)
  1. VALACYCLOVIR [Suspect]
     Active Substance: VALACYCLOVIR HYDROCHLORIDE
     Indication: Herpes zoster
     Dosage: 1 G, 3 TIMES PER DAY
     Route: 065

REACTIONS (7)
  - Confusional state [Recovering/Resolving]
  - Dysarthria [Recovering/Resolving]
  - Dysaesthesia [Recovering/Resolving]
  - Coordination abnormal [Recovering/Resolving]
  - Somnolence [Recovering/Resolving]
  - Tremor [Recovering/Resolving]
  - Toxicity to various agents [Recovering/Resolving]
